FAERS Safety Report 19240650 (Version 2)
Quarter: 2021Q2

REPORT INFORMATION
  Report Type: Spontaneous
  Country: US (occurrence: US)
  Receive Date: 20210511
  Receipt Date: 20210609
  Transmission Date: 20210717
  Serious: No
  Sender: FDA-Public Use
  Company Number: US-HETERO-HET2021US00936

PATIENT

DRUGS (2)
  1. LOSARTAN. [Suspect]
     Active Substance: LOSARTAN
     Indication: HYPERTENSION
     Dosage: 100 MG, O.D.
     Route: 048
     Dates: start: 20210502
  2. SIMVASTATIN. [Concomitant]
     Active Substance: SIMVASTATIN
     Indication: BLOOD CHOLESTEROL
     Dosage: 20 MG, O.D.
     Route: 065

REACTIONS (6)
  - Feeling abnormal [Unknown]
  - Headache [Unknown]
  - Gait inability [Unknown]
  - Product substitution issue [Unknown]
  - Condition aggravated [Unknown]
  - Heart rate increased [Unknown]
